FAERS Safety Report 9495703 (Version 1)
Quarter: 2013Q3

REPORT INFORMATION
  Report Type: Spontaneous
  Country: MX (occurrence: MX)
  Receive Date: 20130903
  Receipt Date: 20130903
  Transmission Date: 20140515
  Serious: Yes (Other)
  Sender: FDA-Public Use
  Company Number: MX-UCBSA-096111

PATIENT
  Age: 24 Month
  Sex: Female
  Weight: 15 kg

DRUGS (4)
  1. VIMPAT [Suspect]
     Indication: EPILEPSY
     Route: 048
     Dates: start: 20130714, end: 20130816
  2. TRANXENE [Concomitant]
     Indication: EPILEPSY
     Route: 048
     Dates: start: 2012
  3. LAMICTAL [Concomitant]
     Indication: EPILEPSY
     Route: 048
     Dates: start: 2012
  4. KEPPRA [Concomitant]
     Indication: EPILEPSY
     Route: 048
     Dates: start: 2012

REACTIONS (4)
  - Convulsion [Recovered/Resolved]
  - Decreased appetite [Recovered/Resolved]
  - Crying [Recovered/Resolved]
  - Balance disorder [Recovered/Resolved]
